FAERS Safety Report 4943778-0 (Version None)
Quarter: 2006Q1

REPORT INFORMATION
  Report Type: 
  Country: None (occurrence: None)
  Receive Date: 20060314
  Receipt Date: 20060308
  Transmission Date: 20060701
  Serious: Yes (Hospitalization)
  Sender: FDA-Public Use
  Company Number: JP-MERCK-0603USA01701

PATIENT
  Age: 88 Year
  Sex: Female

DRUGS (6)
  1. FOSAMAX [Suspect]
     Route: 048
     Dates: start: 20050101
  2. SELBEX [Concomitant]
     Route: 048
  3. OPALMON [Concomitant]
     Route: 048
  4. ONEALFA [Concomitant]
     Route: 048
  5. ADALAT [Concomitant]
     Route: 048
  6. DEPAS [Concomitant]
     Route: 048

REACTIONS (4)
  - BLOOD CREATINE PHOSPHOKINASE INCREASED [None]
  - MYOGLOBINURIA [None]
  - PAIN IN EXTREMITY [None]
  - RASH [None]
